FAERS Safety Report 8222571-X (Version None)
Quarter: 2012Q1

REPORT INFORMATION
  Report Type: 
  Country: None (occurrence: None)
  Receive Date: 20120320
  Receipt Date: 20120319
  Transmission Date: 20120608
  Serious: Yes (Hospitalization)
  Sender: FDA-Public Use
  Company Number: DE-ABBOTT-11P-062-0874241-00

PATIENT
  Sex: Male

DRUGS (2)
  1. HUMIRA [Suspect]
     Indication: CROHN'S DISEASE
     Route: 058
     Dates: start: 20091222, end: 20111014
  2. HUMIRA [Suspect]
     Route: 058
     Dates: start: 20111109, end: 20120104

REACTIONS (3)
  - ENTEROSTOMY [None]
  - FISTULA [None]
  - ABSCESS [None]
